FAERS Safety Report 7563794-2 (Version None)
Quarter: 2011Q2

REPORT INFORMATION
  Report Type: 
  Country: None (occurrence: None)
  Receive Date: 20110621
  Receipt Date: 20110621
  Transmission Date: 20111010
  Serious: No
  Sender: FDA-Public Use
  Company Number: None

PATIENT
  Sex: Female
  Weight: 55 kg

DRUGS (1)
  1. LEVOFLOXACIN [Suspect]
     Dosage: 750MG ONCE PO
     Route: 048
     Dates: start: 20110224

REACTIONS (4)
  - LIP SWELLING [None]
  - ANGIOEDEMA [None]
  - RESPIRATORY TRACT OEDEMA [None]
  - DYSPNOEA [None]
